FAERS Safety Report 4965571-5 (Version None)
Quarter: 2006Q1

REPORT INFORMATION
  Report Type: 
  Country: None (occurrence: None)
  Receive Date: 20060201
  Receipt Date: 20051019
  Transmission Date: 20060701
  Serious: No
  Sender: FDA-Public Use
  Company Number: 2005PV003417

PATIENT
  Age: 77 Year
  Sex: Female
  Weight: 111.1313 kg

DRUGS (10)
  1. BYETTA [Suspect]
     Indication: DIABETES MELLITUS NON-INSULIN-DEPENDENT
     Dosage: 5 MCG; BID; SC
     Route: 058
     Dates: start: 20050928
  2. METFORMIN [Concomitant]
  3. VITAMIN E [Concomitant]
  4. ATENOLOL [Concomitant]
  5. LEXAPRO [Concomitant]
  6. ENALAPRIL MALEATE [Concomitant]
  7. STARLIX [Concomitant]
  8. MULTI-VITAMIN [Concomitant]
  9. IMODIUM [Concomitant]
  10. ASPIRIN [Concomitant]

REACTIONS (9)
  - ABDOMINAL PAIN [None]
  - DIARRHOEA [None]
  - DIZZINESS [None]
  - DYSPEPSIA [None]
  - ERUCTATION [None]
  - FATIGUE [None]
  - FEELING JITTERY [None]
  - HEADACHE [None]
  - NAUSEA [None]
